FAERS Safety Report 19630705 (Version 3)
Quarter: 2021Q3

REPORT INFORMATION
  Report Type: Spontaneous
  Country: US (occurrence: US)
  Receive Date: 20210728
  Receipt Date: 20210823
  Transmission Date: 20211014
  Serious: Yes (Other)
  Sender: FDA-Public Use
  Company Number: US-SA-2021SA240601

PATIENT
  Age: 50 Year
  Sex: Female
  Weight: 123 kg

DRUGS (1)
  1. AUBAGIO [Suspect]
     Active Substance: TERIFLUNOMIDE
     Indication: MULTIPLE SCLEROSIS
     Dosage: 14 MG, QD
     Route: 048
     Dates: start: 202102

REACTIONS (7)
  - Lyme disease [Unknown]
  - Feeling of body temperature change [Unknown]
  - Nausea [Unknown]
  - Rash [Unknown]
  - Presyncope [Unknown]
  - Headache [Unknown]
  - Cold sweat [Unknown]

NARRATIVE: CASE EVENT DATE: 2021
